FAERS Safety Report 12158800 (Version 1)
Quarter: 2016Q1

REPORT INFORMATION
  Report Type: Spontaneous
  Country: US (occurrence: US)
  Receive Date: 20160308
  Receipt Date: 20160308
  Transmission Date: 20160526
  Serious: No
  Sender: FDA-Public Use
  Company Number: US-JNJFOC-20160205366

PATIENT
  Age: 85 Year
  Sex: Female
  Weight: 67.59 kg

DRUGS (2)
  1. ALL OTHER THERAPEUTIC PRODUCTS [Concomitant]
     Active Substance: UNSPECIFIED INGREDIENT
     Indication: PRODUCT USED FOR UNKNOWN INDICATION
  2. TYLENOL EXTRA STRENGTH [Suspect]
     Active Substance: ACETAMINOPHEN
     Indication: ARTHRALGIA
     Route: 048
     Dates: end: 20160204

REACTIONS (3)
  - Product package associated injury [Recovered/Resolved]
  - Underdose [Unknown]
  - Product closure removal difficult [Unknown]
